FAERS Safety Report 23469460 (Version 2)
Quarter: 2025Q2

REPORT INFORMATION
  Report Type: Report from Study
  Country: JP (occurrence: JP)
  Receive Date: 20240202
  Receipt Date: 20250519
  Transmission Date: 20250716
  Serious: Yes (Death, Other)
  Sender: GENMAB
  Company Number: JP-GENMAB-2024-00245

PATIENT
  Age: 88 Year
  Sex: Female
  Weight: 43 kg

DRUGS (1)
  1. EPKINLY [Suspect]
     Active Substance: EPCORITAMAB-BYSP
     Indication: Diffuse large B-cell lymphoma refractory
     Route: 065
     Dates: start: 20240123, end: 20240123

REACTIONS (2)
  - Cytokine release syndrome [Fatal]
  - Diffuse large B-cell lymphoma refractory [Fatal]

NARRATIVE: CASE EVENT DATE: 20240101
